FAERS Safety Report 24820487 (Version 1)
Quarter: 2025Q1

REPORT INFORMATION
  Report Type: Spontaneous
  Country: US (occurrence: US)
  Receive Date: 20250108
  Receipt Date: 20250108
  Transmission Date: 20250409
  Serious: No
  Sender: PHARMACEUTICAL ASSOC
  Company Number: US-PAIPHARMA-2024-US-027943

PATIENT
  Age: 59 Year
  Sex: Female
  Weight: 56.7 kg

DRUGS (4)
  1. UNSPECIFIED INGREDIENT [Concomitant]
     Active Substance: UNSPECIFIED INGREDIENT
  2. TOPROL XL [Concomitant]
     Active Substance: METOPROLOL SUCCINATE
  3. COZAAR [Concomitant]
     Active Substance: LOSARTAN POTASSIUM
  4. NYSTATIN [Suspect]
     Active Substance: NYSTATIN
     Indication: Product used for unknown indication
     Route: 048
     Dates: start: 20240513

REACTIONS (5)
  - Erythema [Not Recovered/Not Resolved]
  - Swelling face [Not Recovered/Not Resolved]
  - Feeling hot [Not Recovered/Not Resolved]
  - Abdominal pain upper [Not Recovered/Not Resolved]
  - Diarrhoea [Not Recovered/Not Resolved]

NARRATIVE: CASE EVENT DATE: 20240514
